FAERS Safety Report 9226507 (Version 3)
Quarter: 2013Q2

REPORT INFORMATION
  Report Type: Spontaneous
  Country: US (occurrence: US)
  Receive Date: 20130412
  Receipt Date: 20130622
  Transmission Date: 20140414
  Serious: No
  Sender: FDA-Public Use
  Company Number: US-009507513-1304USA003604

PATIENT
  Age: 60 Year
  Sex: Female

DRUGS (2)
  1. AZASITE [Suspect]
     Dosage: ONE DROP IN EACH EYE TWICE A DAY
     Route: 047
     Dates: start: 20130403
  2. AZASITE [Suspect]
     Dosage: UNK
     Route: 047
     Dates: end: 20130217

REACTIONS (3)
  - Inappropriate schedule of drug administration [Unknown]
  - Product physical issue [Unknown]
  - No adverse event [Unknown]
